FAERS Safety Report 10765230 (Version 1)
Quarter: 2015Q1

REPORT INFORMATION
  Report Type: Spontaneous
  Country: US (occurrence: None)
  Receive Date: 20150204
  Receipt Date: 20150204
  Transmission Date: 20150721
  Serious: Yes (Other)
  Sender: FDA-Public Use
  Company Number: None

PATIENT
  Age: 8 Year
  Sex: Male

DRUGS (1)
  1. GUANFACINE XR [Suspect]
     Active Substance: GUANFACINE
     Indication: ATTENTION DEFICIT/HYPERACTIVITY DISORDER
     Dosage: 1MG, GHS, ORAL
     Route: 048
     Dates: start: 20150105, end: 20150116

REACTIONS (3)
  - Aggression [None]
  - Impulsive behaviour [None]
  - Disturbance in attention [None]

NARRATIVE: CASE EVENT DATE: 20150105
